FAERS Safety Report 23723018 (Version 2)
Quarter: 2024Q4

REPORT INFORMATION
  Report Type: Spontaneous
  Country: CA (occurrence: CA)
  Receive Date: 20240409
  Receipt Date: 20241101
  Transmission Date: 20250114
  Serious: Yes (Other)
  Sender: PFIZER
  Company Number: CA-PFIZER INC-202400079685

PATIENT
  Age: 90 Year
  Sex: Female
  Weight: 58 kg

DRUGS (13)
  1. VYNDAMAX [Suspect]
     Active Substance: TAFAMIDIS
     Indication: Cardiac amyloidosis
     Dosage: 61 MG, 1X/DAY
     Route: 048
     Dates: start: 20231127
  2. CITALOPRAM [Concomitant]
     Active Substance: CITALOPRAM
     Dosage: UNK
  3. CRESTOR [Concomitant]
     Active Substance: ROSUVASTATIN CALCIUM
     Dosage: 5 MG, DAILY
  4. IRBESARTAN [Concomitant]
     Active Substance: IRBESARTAN
     Dosage: 150 MG, DAILY
  5. FOLIC ACID [Concomitant]
     Active Substance: FOLIC ACID
     Dosage: UNK
  6. FUROSEMIDE [Concomitant]
     Active Substance: FUROSEMIDE
     Dosage: 20 MG, DAILY
  7. LASIX [Concomitant]
     Active Substance: FUROSEMIDE
     Dosage: 20 MG
  8. LASIX [Concomitant]
     Active Substance: FUROSEMIDE
     Dosage: 40 MG
  9. MEMANTINE [Concomitant]
     Active Substance: MEMANTINE
     Dosage: UNK
  10. METHOTREXATE [Concomitant]
     Active Substance: METHOTREXATE
     Dosage: UNK
  11. MIRABEGRON [Concomitant]
     Active Substance: MIRABEGRON
     Dosage: 25 MG AT BEDTIME
  12. PANTOPRAZOLE [Concomitant]
     Active Substance: PANTOPRAZOLE
     Dosage: 40 MG, DAILY
  13. PREDNISONE [Concomitant]
     Active Substance: PREDNISONE
     Dosage: 5 MG, DAILY

REACTIONS (23)
  - Blood pressure systolic increased [Unknown]
  - COVID-19 [Unknown]
  - Cardiac failure [Unknown]
  - Pulmonary congestion [Unknown]
  - Electrocardiogram QT prolonged [Unknown]
  - Syncope [Unknown]
  - Tooth infection [Unknown]
  - Gingivitis [Unknown]
  - Haemoglobin decreased [Unknown]
  - Mean cell volume decreased [Unknown]
  - Red cell distribution width increased [Unknown]
  - Blood chloride increased [Unknown]
  - Thyroxine free decreased [Unknown]
  - Blood iron decreased [Unknown]
  - Transferrin saturation decreased [Unknown]
  - Pleural effusion [Unknown]
  - Spinal osteoarthritis [Unknown]
  - Productive cough [Not Recovered/Not Resolved]
  - Wheezing [Recovered/Resolved]
  - QRS axis abnormal [Unknown]
  - Cardiac murmur [Unknown]
  - Blood pressure systolic decreased [Unknown]
  - Serum ferritin increased [Unknown]

NARRATIVE: CASE EVENT DATE: 20240101
